FAERS Safety Report 16913110 (Version 1)
Quarter: 2019Q4

REPORT INFORMATION
  Report Type: Other
  Country: None (occurrence: CN)
  Receive Date: 20191014
  Receipt Date: 20191014
  Transmission Date: 20200122
  Serious: Yes (Other)
  Sender: FDA-Public Use
  Company Number: CN-JIANGSU HENGRUI MEDICINE CO., LTD.-2075613

PATIENT
  Age: 69 Year
  Sex: Female
  Weight: 48 kg

DRUGS (5)
  1. FONDAPARINUX SODIUM. [Suspect]
     Active Substance: FONDAPARINUX SODIUM
     Indication: COLON CANCER
     Route: 058
     Dates: start: 20190915, end: 20190918
  2. SODIUM POTASSIUM MAGNESIUM CALCIUM GLUCOSE INJECTION [Suspect]
     Active Substance: CALCIUM GLUCONATE\DEXTROSE\MAGNESIUM CHLORIDE\POTASSIUM CHLORIDE\SODIUM ACETATE\SODIUM CHLORIDE\TRISODIUM CITRATE DIHYDRATE
     Route: 041
     Dates: start: 20190915, end: 20190918
  3. CEFMETAZOLE SODIUM FOR INJECTION [Suspect]
     Active Substance: CEFMETAZOLE SODIUM
     Route: 041
     Dates: start: 20190915, end: 20190918
  4. FUROSEMIDE INJECTION [Suspect]
     Active Substance: FUROSEMIDE
     Route: 041
     Dates: start: 20190916, end: 20190918
  5. ORNIDAZOLE AND SODIUM CHLORIDE INJECTION [Suspect]
     Active Substance: ORNIDAZOLE
     Route: 041
     Dates: start: 20190915, end: 20190918

REACTIONS (5)
  - Anaemia [Recovering/Resolving]
  - Blood albumin decreased [Recovering/Resolving]
  - Extrasystoles [Recovering/Resolving]
  - Electrocardiogram ST segment abnormal [Recovering/Resolving]
  - Atrial fibrillation [Recovering/Resolving]

NARRATIVE: CASE EVENT DATE: 20190918
